FAERS Safety Report 8258701-3 (Version None)
Quarter: 2012Q2

REPORT INFORMATION
  Report Type: 
  Country: None (occurrence: None)
  Receive Date: 20120404
  Receipt Date: 20120329
  Transmission Date: 20120825
  Serious: Yes (Hospitalization, Other)
  Sender: FDA-Public Use
  Company Number: AT-ABBOTT-11P-009-0883823-00

PATIENT
  Sex: Female
  Weight: 51 kg

DRUGS (3)
  1. HUMIRA [Suspect]
     Dosage: 2 WEEKS FROM FIRST DOSE
     Route: 058
  2. HUMIRA [Suspect]
     Route: 058
  3. HUMIRA [Suspect]
     Indication: CROHN'S DISEASE
     Route: 058
     Dates: start: 20101201, end: 20101201

REACTIONS (3)
  - ILEAL STENOSIS [None]
  - ABDOMINAL PAIN [None]
  - DIARRHOEA [None]
